FAERS Safety Report 4439924-8 (Version None)
Quarter: 2004Q3

REPORT INFORMATION
  Report Type: 
  Country: None (occurrence: None)
  Receive Date: 20040831
  Receipt Date: 20040818
  Transmission Date: 20050211
  Serious: No
  Sender: FDA-Public Use
  Company Number: 238044

PATIENT
  Age: 77 Year
  Sex: Female

DRUGS (13)
  1. ACTRAPHANE 30 PENFILL (INSULIN HUMAN )SUSPENSION FOR INJECTION , 100 I [Suspect]
     Indication: DIABETES MELLITUS
     Dosage: 58 IU, QD, SUBCUTANEOUS
     Route: 058
  2. PRAVASTATIN SODIUM [Concomitant]
  3. HERZASS ^RATIOPHARM^ (ACETYLSALICYLIC ACID) [Concomitant]
  4. BELOC-ZOC FORTE (METOPROLOL SUCCINATE) [Concomitant]
  5. LISINOPRIL [Concomitant]
  6. NITROLINGUAL-PUMPSPRAY (GLYCERYL TRINITRATE) [Concomitant]
  7. UNAT (TORASEMIDE) [Concomitant]
  8. CALCIMAGON-D3 (CALCIUM CARBONATE COLECALCIFEROL) [Concomitant]
  9. KALIUM (POTASSIUM CHLORIDE) [Concomitant]
  10. ALLOPURINOL [Concomitant]
  11. KATADOLON (FLUPIRTINE MALEATE) [Concomitant]
  12. TRAMADOLOR [Concomitant]
  13. ALEVERT [Concomitant]

REACTIONS (4)
  - DRUG INEFFECTIVE [None]
  - HYPERGLYCAEMIA [None]
  - HYPERHIDROSIS [None]
  - NAUSEA [None]
